FAERS Safety Report 8911750 (Version 1)
Quarter: 2012Q4

REPORT INFORMATION
  Report Type: 
  Country: US (occurrence: US)
  Receive Date: 20121116
  Receipt Date: 20121116
  Transmission Date: 20130627
  Serious: No
  Sender: FDA-Public Use
  Company Number: US-MYLANLABS-2012S1013471

PATIENT
  Age: 73 Year
  Sex: Male
  Weight: 66.68 kg

DRUGS (7)
  1. AMLODIPINE BESILATE TABLETS [Suspect]
     Indication: BLOOD PRESSURE INCREASED
     Route: 048
  2. OMEPRAZOLE [Concomitant]
     Indication: GASTROOESOPHAGEAL REFLUX DISEASE
     Route: 048
  3. FOLIC ACID [Concomitant]
  4. TAMSULOSIN [Concomitant]
     Indication: PROSTATOMEGALY
  5. PRAVASTATIN [Concomitant]
     Indication: BLOOD CHOLESTEROL INCREASED
  6. PRAMIPEXOLE [Concomitant]
     Indication: RESTLESS LEGS SYNDROME
  7. ASA [Concomitant]

REACTIONS (1)
  - Throat irritation [Not Recovered/Not Resolved]
